FAERS Safety Report 18964114 (Version 2)
Quarter: 2021Q1

REPORT INFORMATION
  Report Type: Spontaneous
  Country: CY (occurrence: CY)
  Receive Date: 20210303
  Receipt Date: 20210312
  Transmission Date: 20210420
  Serious: Yes (Other)
  Sender: FDA-Public Use
  Company Number: CY-PFIZER INC-2021203785

PATIENT
  Age: 69 Year
  Sex: Male
  Weight: 85 kg

DRUGS (3)
  1. CONTROLOC [Suspect]
     Active Substance: PANTOPRAZOLE SODIUM
     Indication: GASTRITIS
     Dosage: 40 MG, 1X/DAY (QD)
     Route: 065
  2. ITOPRIDE HYDROCHLORIDE [Suspect]
     Active Substance: ITOPRIDE HYDROCHLORIDE
     Indication: FLATULENCE
     Dosage: UNK, 2X/DAY (Q12H)
     Route: 048
     Dates: start: 20210111, end: 20210118
  3. ROVASYN [Concomitant]
     Indication: DYSLIPIDAEMIA
     Dosage: 5 MG, 1X/DAY (QD)

REACTIONS (1)
  - Bradycardia [Recovered/Resolved]

NARRATIVE: CASE EVENT DATE: 20210117
